FAERS Safety Report 4302723-1 (Version None)
Quarter: 2004Q1

REPORT INFORMATION
  Report Type: 
  Country: None (occurrence: None)
  Receive Date: 20040224
  Receipt Date: 20031210
  Transmission Date: 20041129
  Serious: Yes (Life-Threatening, Other)
  Sender: FDA-Public Use
  Company Number: PHEH2003US11271

PATIENT
  Age: 52 Year
  Sex: Male

DRUGS (4)
  1. CLOZARIL [Suspect]
     Dosage: 1400 MG, QD
     Route: 048
     Dates: start: 20030821
  2. CLOZARIL [Suspect]
     Dosage: 350 MG, QD
     Route: 048
  3. RITALIN [Concomitant]
  4. KLONOPIN [Concomitant]

REACTIONS (5)
  - ACCIDENTAL OVERDOSE [None]
  - AMNESIA [None]
  - DISORIENTATION [None]
  - INTENTIONAL OVERDOSE [None]
  - MEDICATION ERROR [None]
